FAERS Safety Report 9554736 (Version 2)
Quarter: 2013Q3

REPORT INFORMATION
  Report Type: Report from Study
  Country: DE (occurrence: DE)
  Receive Date: 20130926
  Receipt Date: 20130926
  Transmission Date: 20140515
  Serious: Yes (Hospitalization)
  Sender: FDA-Public Use
  Company Number: DE-ROCHE-1171951

PATIENT
  Age: 64 Year
  Sex: Female
  Weight: 74 kg

DRUGS (4)
  1. OXALIPLATIN [Suspect]
     Indication: COLON CANCER
     Dosage: DATE OF LAST DOSE PRIOR TO SAE:10/DEC/2012
     Route: 065
     Dates: start: 20121008
  2. 5-FU [Suspect]
     Indication: COLON CANCER
     Dosage: DATE OF LAST DOSE PRIOR TO SAE:10/DEC/2012
     Route: 065
     Dates: start: 20121009
  3. FOLINIC ACID [Suspect]
     Indication: COLON CANCER
     Dosage: DATE OF LAST DOSE PRIOR TO SAE:10/DEC/2012
     Route: 065
     Dates: start: 20121008
  4. BEVACIZUMAB [Suspect]
     Indication: COLON CANCER
     Dosage: DATE OF LAST DOSE PRIOR TO SAE:10/DEC/2012
     Route: 065
     Dates: start: 20121126

REACTIONS (2)
  - Mucosal inflammation [Recovered/Resolved]
  - Dehydration [Recovered/Resolved]
